FAERS Safety Report 20985367 (Version 1)
Quarter: 2022Q2

REPORT INFORMATION
  Report Type: Spontaneous
  Country: US (occurrence: US)
  Receive Date: 20220621
  Receipt Date: 20220621
  Transmission Date: 20220720
  Serious: Yes (Hospitalization)
  Sender: FDA-Public Use
  Company Number: US-CELGENE-USA-20220204224

PATIENT
  Age: 81 Year
  Sex: Male

DRUGS (3)
  1. REVLIMID [Suspect]
     Active Substance: LENALIDOMIDE
     Indication: Plasma cell myeloma
     Dosage: 5 MILLIGRAM, 1 CAPSULE BY MOUTH EVERYDAY FOR 28 DAYS??LOT NO. A3607A
     Route: 048
     Dates: start: 20211216
  2. REVLIMID [Suspect]
     Active Substance: LENALIDOMIDE
     Indication: COVID-19
  3. REVLIMID [Suspect]
     Active Substance: LENALIDOMIDE
     Indication: Off label use

REACTIONS (3)
  - Pruritus [Recovered/Resolved]
  - Acne [Unknown]
  - Hypersensitivity [Unknown]
